FAERS Safety Report 10587469 (Version 2)
Quarter: 2015Q2

REPORT INFORMATION
  Report Type: Spontaneous
  Country: US (occurrence: US)
  Receive Date: 20141117
  Receipt Date: 20150415
  Transmission Date: 20150821
  Serious: Yes (Other)
  Sender: FDA-Public Use
  Company Number: US-PFIZER INC-2014312752

PATIENT
  Age: 64 Year
  Sex: Female
  Weight: 103.86 kg

DRUGS (53)
  1. PLAQUENIL [Concomitant]
     Active Substance: HYDROXYCHLOROQUINE SULFATE
     Indication: SYSTEMIC LUPUS ERYTHEMATOSUS
     Dosage: 200 MG, 2X/DAY WITH FOOD OR MILK
  2. MONTELUKAST [Concomitant]
     Active Substance: MONTELUKAST SODIUM
     Dosage: 10 MG, 1X/DAY
  3. FERROUS SULFATE 325 (65 IRON TABLET) [Concomitant]
     Dosage: 325 MG, 1X/DAY
  4. PROAIRHFA 108 (90 BASE) MCG/ ACT [Concomitant]
     Indication: DYSPNOEA
  5. SINGULAIR [Concomitant]
     Active Substance: MONTELUKAST SODIUM
     Dosage: 10 MG, AS NEEDED (IN THE EVENING)
  6. VITAMIN D-3 [Concomitant]
     Dosage: 5000 IU, 1X/DAY
  7. LASIX [Concomitant]
     Active Substance: FUROSEMIDE
     Dosage: 80 MG, 1X/DAY
  8. HUMALOG [Concomitant]
     Active Substance: INSULIN LISPRO
     Dosage: 18 IU, 3X/DAY WITH MEALS
  9. EFFEXOR XR [Concomitant]
     Active Substance: VENLAFAXINE HYDROCHLORIDE
     Dosage: 37.5 MG, 1X/DAY
  10. EFFEXOR XR [Concomitant]
     Active Substance: VENLAFAXINE HYDROCHLORIDE
     Dosage: 75 MG, DAILY (2 TABS/D)
  11. LOSARTAN POTASSIUM 50 [Concomitant]
     Dosage: 1 DF, 1X/DAY
  12. ASPIRIN. [Concomitant]
     Active Substance: ASPIRIN
     Dosage: 81 MG, 1X/DAY
  13. FOLIC ACID. [Concomitant]
     Active Substance: FOLIC ACID
     Dosage: 1 MG, 1X/DAY
  14. HYDROXYCHLOROQUINE SULFATE. [Concomitant]
     Active Substance: HYDROXYCHLOROQUINE SULFATE
     Dosage: 200 MG, 2X/DAY WITH FOOD OR MILK
  15. ALBUTEROL SULFATE. [Concomitant]
     Active Substance: ALBUTEROL SULFATE
     Dosage: 3 ML, 3X/DAY
  16. ATORVASTATIN CALCIUM. [Concomitant]
     Active Substance: ATORVASTATIN CALCIUM
     Dosage: 20 MG, BEDTIME
  17. EFFEXOR XR [Concomitant]
     Active Substance: VENLAFAXINE HYDROCHLORIDE
     Dosage: 112.5 MG, 1X/DAY (3 TABS/D WITH FOOD ONCE A DAY)
  18. RAMIPRIL. [Concomitant]
     Active Substance: RAMIPRIL
     Dosage: 2.5 MG (1 CAPSULE), 1X/DAY
  19. INSULIN [Concomitant]
     Active Substance: INSULIN NOS
     Dosage: UNK, 3X/DAY AS DIRECTED
  20. ACETAMINOPHEN - CODEINE # 3 [Concomitant]
     Dosage: CODEINE PHOSPHATE-30MG, PARACETAMOL 300MG, AS NEEDED EVERY 6 HRS
  21. FLUTICASONE [Concomitant]
     Active Substance: FLUTICASONE\FLUTICASONE PROPIONATE
     Dosage: 100 ?G, 1X/DAY
     Route: 045
  22. LEXAPRO [Concomitant]
     Active Substance: ESCITALOPRAM OXALATE
     Dosage: 10 MG, 1X/DAY
  23. SYMBICORT 80/4.5 MCG/ ACT [Concomitant]
     Dosage: 2 PUFFS, 2X/DAY
  24. TRAMADOL HCL [Concomitant]
     Active Substance: TRAMADOL HYDROCHLORIDE
     Dosage: 50 MG (1 CAPSULE), 1X/DAY
  25. TRACLEER [Concomitant]
     Active Substance: BOSENTAN\BOSENTAN MONOHYDRATE
     Indication: HYPERTENSION
     Dosage: UNK
     Dates: end: 201206
  26. HUMULIN R [Concomitant]
     Active Substance: INSULIN HUMAN
     Dosage: 15 IU, 3X/DAY
  27. FLUTICASONE PROPIONATE 50 MCG/ACT SUSPENSION [Concomitant]
     Dosage: 2 SPRAYS NASALLY EVERY DAY
     Route: 045
  28. ZOFRAN [Concomitant]
     Active Substance: ONDANSETRON HYDROCHLORIDE
     Dosage: 40 MG, 1X/DAY (NOT TAKING/PRN)
  29. PRILOSEC [Concomitant]
     Active Substance: OMEPRAZOLE MAGNESIUM
     Indication: GASTROOESOPHAGEAL REFLUX DISEASE
     Dosage: 40 MG (1 CAPSULE), 1X/DAY
  30. LYRICA [Suspect]
     Active Substance: PREGABALIN
     Indication: FIBROMYALGIA
     Dosage: 150 MG, 2X/DAY
     Route: 048
     Dates: start: 2009
  31. HUMULIN R [Concomitant]
     Active Substance: INSULIN HUMAN
     Indication: DIABETES MELLITUS
     Dosage: 17 IU, 3X/DAY
  32. FUROSEMIDE. [Concomitant]
     Active Substance: FUROSEMIDE
     Dosage: 40 MG, 2X/DAY
  33. OMEPRAZOLE. [Concomitant]
     Active Substance: OMEPRAZOLE
     Dosage: 40 MG, 2X/DAY
  34. VITAMIN B12 [Concomitant]
     Active Substance: CYANOCOBALAMIN
     Dosage: 1000 ?G, 1X/DAY
  35. ESCITALOPRAM OXALATE. [Concomitant]
     Active Substance: ESCITALOPRAM OXALATE
     Dosage: 10 MG, 1X/DAY
  36. LEXAPRO [Concomitant]
     Active Substance: ESCITALOPRAM OXALATE
     Dosage: 1 MG, 1X/DAY
  37. LOSARTAN [Concomitant]
     Active Substance: LOSARTAN
     Indication: BLOOD PRESSURE ABNORMAL
     Dosage: 50 MG, DAILY
  38. PREDNISONE. [Concomitant]
     Active Substance: PREDNISONE
     Dosage: 50 MG, 1X/DAY WITH FOOD OR MILK
  39. IMURAN [Concomitant]
     Active Substance: AZATHIOPRINE
     Dosage: 2 TABLETS Q AM AND 1 TABLET Q PM
  40. KEFLEX [Concomitant]
     Active Substance: CEPHALEXIN
     Dosage: 500 MG, 2X/DAY
  41. LIPITOR [Concomitant]
     Active Substance: ATORVASTATIN CALCIUM
     Dosage: 10 MG (20 MG TABLET ? TABLET), 1X/DAY
  42. CYMBALTA [Concomitant]
     Active Substance: DULOXETINE HYDROCHLORIDE
     Indication: FIBROMYALGIA
     Dosage: 60 MG, DAILY
     Dates: end: 201308
  43. LYRICA [Suspect]
     Active Substance: PREGABALIN
     Dosage: UNK
     Route: 048
     Dates: start: 201402, end: 201411
  44. CARVEDILOL. [Concomitant]
     Active Substance: CARVEDILOL
     Indication: BLOOD PRESSURE ABNORMAL
     Dosage: 3.125 MG, 2X/DAY
  45. CALCIUM [Concomitant]
     Active Substance: CALCIUM
     Dosage: 500 MG, 2X/DAY
  46. HUMALOG KWIKPEN [Concomitant]
     Active Substance: INSULIN LISPRO
     Dosage: 100 IU/ML, AS DIRECTED SLIDING SCALE
  47. LANTUS [Concomitant]
     Active Substance: INSULIN GLARGINE
     Indication: DIABETES MELLITUS
     Dosage: 44 IU, 1X/DAY
  48. ASPIRIN. [Concomitant]
     Active Substance: ASPIRIN
     Indication: HEADACHE
     Dosage: 325MG 2 TABS TWICE A DAY 2 TIMES A WEEK
     Dates: end: 201304
  49. PROAIRHFA 108 (90 BASE) MCG/ ACT [Concomitant]
     Indication: WHEEZING
     Dosage: 2 PUFFS AS NEEDED FOR WHEEZING OR SHORTNESS OF BREATH EVERY 6 HRS
  50. AZATHIOPRINE. [Concomitant]
     Active Substance: AZATHIOPRINE
     Indication: SYSTEMIC LUPUS ERYTHEMATOSUS
     Dosage: 100 MG, 2X/DAY
  51. TIZANIDINE HYDROCHLORIDE. [Concomitant]
     Active Substance: TIZANIDINE HYDROCHLORIDE
     Dosage: 4 MG, 1-2 TABLET, 3X/DAY AS NEEDED
  52. PROTONIX [Concomitant]
     Active Substance: PANTOPRAZOLE SODIUM
     Dosage: 40 MG, 1X/DAY PRN
  53. PANTOPRAZOLE SODIUM [Concomitant]
     Dosage: 40 MG, 1X/DAY

REACTIONS (37)
  - Osteoarthritis [Recovering/Resolving]
  - Arthralgia [Recovering/Resolving]
  - Condition aggravated [Unknown]
  - Hypersensitivity vasculitis [Recovered/Resolved]
  - Intracranial aneurysm [Unknown]
  - Urinary tract infection bacterial [Unknown]
  - Weight increased [Unknown]
  - Amnesia [Unknown]
  - Myalgia [Recovering/Resolving]
  - Patellofemoral pain syndrome [Recovering/Resolving]
  - Disease recurrence [Recovering/Resolving]
  - Congestive cardiomyopathy [Unknown]
  - Sinusitis [Unknown]
  - Tendonitis [Recovering/Resolving]
  - Musculoskeletal chest pain [Recovering/Resolving]
  - Diabetic gastroparesis [Unknown]
  - Fibromyalgia [Unknown]
  - Pain [Recovering/Resolving]
  - Neck pain [Recovering/Resolving]
  - Back pain [Recovering/Resolving]
  - Musculoskeletal pain [Recovering/Resolving]
  - Spinal osteoarthritis [Unknown]
  - Pulmonary mass [Unknown]
  - Bronchitis [Unknown]
  - Systemic lupus erythematosus [Recovering/Resolving]
  - Joint range of motion decreased [Unknown]
  - Bursitis [Recovering/Resolving]
  - Atelectasis [Unknown]
  - Abdominal pain [Unknown]
  - Sjogren^s syndrome [Unknown]
  - Pulmonary hypertension [Unknown]
  - Weight decreased [Unknown]
  - Headache [Unknown]
  - Intervertebral disc degeneration [Recovering/Resolving]
  - Gastrooesophageal reflux disease [Recovering/Resolving]
  - Abdominal distension [Unknown]
  - Gastritis [Unknown]

NARRATIVE: CASE EVENT DATE: 201212
